FAERS Safety Report 7535501-0 (Version None)
Quarter: 2011Q2

REPORT INFORMATION
  Report Type: 
  Country: None (occurrence: None)
  Receive Date: 20110609
  Receipt Date: 20101216
  Transmission Date: 20111010
  Serious: Yes (Other)
  Sender: FDA-Public Use
  Company Number: US-BAYER-201015477NA

PATIENT
  Age: 18 Year
  Sex: Female
  Weight: 102.4 kg

DRUGS (12)
  1. LEXAPRO [Concomitant]
     Dosage: 10 MG, UNK
  2. HYDROCODONE BITARTRATE AND ACETAMINOPHEN [Concomitant]
     Dosage: EVERY 4 +#8211; 6 HOURS
     Route: 048
  3. DILTIAZEM [Concomitant]
     Dosage: 30 MG, BID
     Route: 048
  4. CARTIA XT [Concomitant]
     Dosage: 120 MG, QD
     Route: 048
  5. ATENOLOL [Concomitant]
     Dosage: 25 MG, TAKE ? TAB EVERY HOUR OF SLEEP
     Route: 048
  6. ZANTAC [Concomitant]
  7. DILTIAZEM [Concomitant]
     Dosage: 180 MG, UNK
     Route: 048
  8. SOTALOL HCL [Concomitant]
     Dosage: 80 MG, UNK
     Route: 048
  9. PROCHLORPERAZINE TAB [Concomitant]
     Dosage: 10 MG, EVERY 6-8 HRS
     Route: 048
  10. DROSPIRENONE AND ETHINYL ESTRADIOL [Suspect]
     Indication: PRODUCT USED FOR UNKNOWN INDICATION
     Route: 048
     Dates: start: 20070901, end: 20080601
  11. YASMIN [Suspect]
     Indication: PRODUCT USED FOR UNKNOWN INDICATION
     Route: 048
     Dates: start: 20060201, end: 20070901
  12. FLUCONAZOLE [Concomitant]
     Dosage: 150 MG, TAKE 1 TAB NOW, REPEAT IN 10 DAYS

REACTIONS (4)
  - SINUS TACHYCARDIA [None]
  - ARRHYTHMIA [None]
  - CHEST PAIN [None]
  - MITRAL VALVE PROLAPSE [None]
